FAERS Safety Report 7067581-3 (Version None)
Quarter: 2010Q4

REPORT INFORMATION
  Report Type: 
  Country: None (occurrence: None)
  Receive Date: 20101028
  Receipt Date: 20101015
  Transmission Date: 20110411
  Serious: Yes (Hospitalization)
  Sender: FDA-Public Use
  Company Number: US-ELI_LILLY_AND_COMPANY-US201010004552

PATIENT
  Sex: Female

DRUGS (12)
  1. FORTEO [Suspect]
     Indication: OSTEOPOROSIS
     Dosage: 20 UG, DAILY (1/D)
  2. ASPIRIN [Concomitant]
  3. BUMETANIDE [Concomitant]
  4. CLONAZEPAM [Concomitant]
  5. MULTIVITAMIN [Concomitant]
  6. ISOSORBIDE DINITRATE [Concomitant]
  7. LOVASTATIN [Concomitant]
  8. METOPROLOL [Concomitant]
  9. TEMAZEPAM [Concomitant]
  10. METOLAZONE [Concomitant]
  11. LEVEMIR [Concomitant]
  12. NOVOLOG [Concomitant]

REACTIONS (11)
  - ARTHRALGIA [None]
  - CONSTIPATION [None]
  - CRYING [None]
  - DEPRESSION [None]
  - DYSPNOEA [None]
  - EMOTIONAL DISTRESS [None]
  - FLUID RETENTION [None]
  - JOINT RANGE OF MOTION DECREASED [None]
  - MEMORY IMPAIRMENT [None]
  - MUSCULOSKELETAL PAIN [None]
  - OEDEMA PERIPHERAL [None]
